FAERS Safety Report 22989209 (Version 7)
Quarter: 2024Q3

REPORT INFORMATION
  Report Type: Report from Study
  Country: US (occurrence: US)
  Receive Date: 20230927
  Receipt Date: 20240926
  Transmission Date: 20241016
  Serious: Yes (Other)
  Sender: GLAXOSMITHKLINE
  Company Number: US-GLAXOSMITHKLINE-US2023AMR130659

PATIENT

DRUGS (2)
  1. NIRAPARIB [Suspect]
     Active Substance: NIRAPARIB
     Indication: Ovarian cancer
     Dosage: 300 MG, QD
     Dates: start: 20230918, end: 20230924
  2. NIRAPARIB [Suspect]
     Active Substance: NIRAPARIB
     Indication: Fallopian tube cancer
     Dosage: 300 MG, QD
     Dates: start: 20230926, end: 20231010

REACTIONS (11)
  - Thrombocytopenia [Recovering/Resolving]
  - Cardiac flutter [Recovering/Resolving]
  - Fatigue [Not Recovered/Not Resolved]
  - Confusional state [Recovering/Resolving]
  - Condition aggravated [Recovering/Resolving]
  - Constipation [Recovered/Resolved]
  - Platelet count decreased [Recovered/Resolved]
  - White blood cell count decreased [Recovered/Resolved]
  - Red blood cell count decreased [Not Recovered/Not Resolved]
  - Arthralgia [Unknown]
  - Product dose omission issue [Unknown]

NARRATIVE: CASE EVENT DATE: 20230918
